FAERS Safety Report 7305288-5 (Version None)
Quarter: 2011Q1

REPORT INFORMATION
  Report Type: 
  Country: None (occurrence: None)
  Receive Date: 20110222
  Receipt Date: 20110215
  Transmission Date: 20110831
  Serious: Yes (Hospitalization)
  Sender: FDA-Public Use
  Company Number: JP-PFIZER INC-2011032772

PATIENT
  Age: 82 Year
  Sex: Female
  Weight: 50.3 kg

DRUGS (18)
  1. ESANBUTOL [Concomitant]
     Indication: MYCOBACTERIUM AVIUM COMPLEX INFECTION
     Dosage: 250 MG, 3X/DAY
     Route: 048
     Dates: end: 20100805
  2. GARENOXACIN MESILATE [Concomitant]
     Indication: MYCOBACTERIUM AVIUM COMPLEX INFECTION
     Dosage: 400 MG, 1X/DAY
     Route: 048
     Dates: end: 20100805
  3. TAKEPRON [Concomitant]
     Dosage: 15 MG, 1X/DAY
     Route: 048
  4. NOVORAPID [Concomitant]
     Dosage: 10 IU, 1X/DAY
     Route: 058
  5. STARSIS [Concomitant]
     Dosage: 90 MG, 2X/DAY
     Route: 048
  6. RIFABUTIN [Suspect]
     Indication: MYCOBACTERIUM AVIUM COMPLEX INFECTION
     Dosage: 300 MG, 1X/DAY
     Route: 048
     Dates: start: 20100712, end: 20100728
  7. KLARICID [Concomitant]
     Indication: MYCOBACTERIUM AVIUM COMPLEX INFECTION
     Dosage: 200 MG, 3X/DAY
     Route: 048
     Dates: end: 20100805
  8. PREDONINE [Concomitant]
     Dosage: 2.5 MG, 1X/DAY
     Route: 048
  9. MEVALOTIN [Concomitant]
     Dosage: 5 MG, 1X/DAY
     Route: 048
  10. PANTOSIN [Concomitant]
     Dosage: 1 G, 1X/DAY
     Route: 048
  11. RIFADIN [Concomitant]
     Dosage: 150 MG, 3X/DAY
     Dates: start: 20100715, end: 20100723
  12. BAKTAR [Concomitant]
     Dosage: UNK
     Route: 048
  13. FERRO-GRADUMET [Concomitant]
     Dosage: UNK MG, UNK
     Route: 048
  14. RISEDRONATE SODIUM HYDRATE [Concomitant]
     Dosage: 17.5 MG, WEEKLY
     Route: 048
  15. MUCOSTA [Concomitant]
     Dosage: 100 MG, 3X/DAY
     Route: 048
  16. NORVASC [Concomitant]
     Dosage: 2.5 MG, 1X/DAY
     Route: 048
  17. MAGNESIUM OXIDE [Concomitant]
     Dosage: 1 G, 1X/DAY
     Route: 048
  18. LASIX [Concomitant]
     Dosage: 40 MG, 1X/DAY
     Route: 048

REACTIONS (2)
  - LIVER DISORDER [None]
  - MALAISE [None]
